FAERS Safety Report 15576387 (Version 3)
Quarter: 2019Q1

REPORT INFORMATION
  Report Type: Spontaneous
  Country: ES (occurrence: ES)
  Receive Date: 20181101
  Receipt Date: 20190116
  Transmission Date: 20190417
  Serious: Yes (Life-Threatening, Hospitalization, Other)
  Sender: FDA-Public Use
  Company Number: ES-BAUSCH-BL-2018-029704

PATIENT
  Age: 62 Year
  Sex: Female

DRUGS (4)
  1. DARBEPOETIN ALFA [Concomitant]
     Active Substance: DARBEPOETIN ALFA
     Indication: PLASMA CELL MYELOMA
     Dosage: CYCLICAL PER MONTH
     Route: 065
  2. SIMVASTATIN. [Concomitant]
     Active Substance: SIMVASTATIN
     Indication: PRODUCT USED FOR UNKNOWN INDICATION
     Route: 065
  3. REVLIMID [Suspect]
     Active Substance: LENALIDOMIDE
     Indication: PLASMA CELL MYELOMA
     Dosage: DAILY, CYCLICAL
     Route: 048
  4. DEXAMETHASONE. [Suspect]
     Active Substance: DEXAMETHASONE
     Indication: PLASMA CELL MYELOMA
     Dosage: WEEKLY, CYCLICAL
     Route: 065

REACTIONS (5)
  - Cerebral infarction [Recovering/Resolving]
  - Plasma cell myeloma recurrent [Unknown]
  - Arterial thrombosis [Recovering/Resolving]
  - Cerebral ischaemia [Recovering/Resolving]
  - Hypercoagulation [Recovering/Resolving]
